FAERS Safety Report 25896462 (Version 2)
Quarter: 2025Q4

REPORT INFORMATION
  Report Type: Report from Study
  Country: US (occurrence: US)
  Receive Date: 20251008
  Receipt Date: 20251121
  Transmission Date: 20260118
  Serious: Yes (Other)
  Sender: MARINUS PHARMACEUTICALS
  Company Number: US-MARINUS PHARMACEUTICALS, INC.-MAR2025000240

PATIENT

DRUGS (1)
  1. GANAXOLONE [Suspect]
     Active Substance: GANAXOLONE
     Indication: Epilepsy
     Dosage: 3ML WEEK 1, 6ML WEEK 2, 9ML WEEK 3, 12ML WEEK 4,
     Route: 048
     Dates: start: 20251007

REACTIONS (4)
  - Seizure [Unknown]
  - Salivary hypersecretion [Unknown]
  - Inappropriate schedule of product administration [Unknown]
  - Somnolence [Unknown]

NARRATIVE: CASE EVENT DATE: 20250101
